FAERS Safety Report 6261359-6 (Version None)
Quarter: 2009Q3

REPORT INFORMATION
  Report Type: 
  Country: None (occurrence: None)
  Receive Date: 20090709
  Receipt Date: 20090708
  Transmission Date: 20100115
  Serious: Yes (Other)
  Sender: FDA-Public Use
  Company Number: US-PFIZER INC-2009219431

PATIENT

DRUGS (1)
  1. CELEBREX [Suspect]
     Dosage: UNK MG, UNK

REACTIONS (1)
  - COLITIS [None]
